FAERS Safety Report 6326389-4 (Version None)
Quarter: 2009Q3

REPORT INFORMATION
  Report Type: 
  Country: None (occurrence: None)
  Receive Date: 20090821
  Receipt Date: 20090812
  Transmission Date: 20100115
  Serious: Yes (Hospitalization)
  Sender: FDA-Public Use
  Company Number: GXKR2009CH09166

PATIENT
  Age: 66 Year
  Sex: Male

DRUGS (15)
  1. AMLODIPINE [Suspect]
     Dosage: 10 MG DAILY, ORAL
     Route: 048
     Dates: start: 20090417, end: 20090423
  2. TORASEMIDE SANDOZ (NGX) (TORASEMIDE) UNKNOWN, 10MG [Suspect]
     Dosage: 10 MG/DAY, ORAL
     Route: 048
     Dates: start: 20090419, end: 20090423
  3. ENALAPRIL (ENALAPRIL) 20MG [Suspect]
     Dosage: 1 DF, BID, ORAL; ORAL
     Route: 048
     Dates: start: 20090414, end: 20090423
  4. ENALAPRIL (ENALAPRIL) 20MG [Suspect]
     Dosage: 1 DF, BID, ORAL; ORAL
     Route: 048
     Dates: start: 20090424
  5. MOXONIDINE (MOXONIDINE) 0.4MG [Suspect]
     Dosage: 1 DF, BID, ORAL
     Route: 048
     Dates: start: 20090417, end: 20090423
  6. LOPRESSOR [Suspect]
     Dosage: 1 DF, BID, ORAL; ORAL
     Route: 048
     Dates: end: 20090423
  7. LOPRESSOR [Suspect]
     Dosage: 1 DF, BID, ORAL; ORAL
     Route: 048
     Dates: start: 20090424
  8. ALDACTONE [Concomitant]
  9. INSULIN (INSULIN) [Concomitant]
  10. ASPIRIN [Concomitant]
  11. NEXIUM [Concomitant]
  12. PREDNISONE TAB [Concomitant]
  13. ACETAMINOPHEN [Concomitant]
  14. OXAZEPAM [Concomitant]
  15. HALDOL [Concomitant]

REACTIONS (3)
  - DEPRESSED LEVEL OF CONSCIOUSNESS [None]
  - DRUG INTERACTION [None]
  - HYPOTENSION [None]
